FAERS Safety Report 4292650-0 (Version None)
Quarter: 2004Q1

REPORT INFORMATION
  Report Type: 
  Country: None (occurrence: None)
  Receive Date: 20040126
  Receipt Date: 20031112
  Transmission Date: 20041129
  Serious: No
  Sender: FDA-Public Use
  Company Number: USA031048934

PATIENT
  Age: 66 Year
  Sex: Female
  Weight: 97 kg

DRUGS (9)
  1. FORTEO [Suspect]
     Indication: OSTEOPOROSIS
     Dosage: 26 UG/DAY
     Dates: start: 20030501
  2. VITAMIN CAP [Concomitant]
  3. FUROSEMIDE [Concomitant]
  4. SYNTHROID [Concomitant]
  5. PROZAC [Concomitant]
  6. ZOCOR [Concomitant]
  7. PROVIGIL [Concomitant]
  8. XANAX [Concomitant]
  9. ACIPHEX (RABERPRAZOLE SODIUM) [Concomitant]

REACTIONS (5)
  - FATIGUE [None]
  - INCREASED APPETITE [None]
  - MOBILITY DECREASED [None]
  - OEDEMA PERIPHERAL [None]
  - WEIGHT INCREASED [None]
